APPROVED DRUG PRODUCT: NIFEDIPINE
Active Ingredient: NIFEDIPINE
Strength: 30MG
Dosage Form/Route: TABLET, EXTENDED RELEASE;ORAL
Application: A075269 | Product #001 | TE Code: AB1
Applicant: VALEANT PHARMACEUTICALS NORTH AMERICA LLC
Approved: Dec 4, 2000 | RLD: No | RS: No | Type: RX